FAERS Safety Report 14263341 (Version 2)
Quarter: 2019Q1

REPORT INFORMATION
  Report Type: Spontaneous
  Country: US (occurrence: US)
  Receive Date: 20171208
  Receipt Date: 20190227
  Transmission Date: 20190417
  Serious: No
  Sender: FDA-Public Use
  Company Number: US-BAUSCH-BL-2017-002217

PATIENT
  Age: 35 Year
  Sex: Female

DRUGS (2)
  1. APRISO [Suspect]
     Active Substance: MESALAMINE
     Indication: COLITIS ULCERATIVE
     Route: 048
     Dates: start: 201610
  2. APRISO [Suspect]
     Active Substance: MESALAMINE
     Route: 048
     Dates: end: 20170201

REACTIONS (3)
  - Drug effect decreased [Unknown]
  - Maternal exposure during pregnancy [Unknown]
  - Underdose [Unknown]

NARRATIVE: CASE EVENT DATE: 201610
